FAERS Safety Report 4391092-7 (Version None)
Quarter: 2004Q2

REPORT INFORMATION
  Report Type: 
  Country: None (occurrence: None)
  Receive Date: 20040621
  Receipt Date: 20040225
  Transmission Date: 20050107
  Serious: Yes (Other)
  Sender: FDA-Public Use
  Company Number: USA-2003-0009415

PATIENT
  Age: 49 Year
  Sex: Male
  Weight: 185.5 kg

DRUGS (8)
  1. OXYCONTIN [Suspect]
     Indication: PAIN
     Dosage: UNK MG
     Dates: start: 20000101, end: 20010501
  2. CELEBREX [Concomitant]
  3. SOMA [Concomitant]
  4. ACTOS [Concomitant]
  5. HUMALOG [Concomitant]
  6. DARVOCET-N 100 [Concomitant]
  7. ACEON [Concomitant]
  8. DIOVAN [Concomitant]

REACTIONS (15)
  - CELLULITIS [None]
  - DEPRESSION [None]
  - DIARRHOEA [None]
  - DRUG DEPENDENCE [None]
  - DRUG WITHDRAWAL SYNDROME [None]
  - HEADACHE [None]
  - HYPERHIDROSIS [None]
  - INSOMNIA [None]
  - IRRITABILITY [None]
  - NAUSEA [None]
  - NERVOUSNESS [None]
  - SENSATION OF FOREIGN BODY [None]
  - TREMOR [None]
  - VOMITING [None]
  - WEIGHT DECREASED [None]
